FAERS Safety Report 7502503-X (Version None)
Quarter: 2011Q2

REPORT INFORMATION
  Report Type: 
  Country: None (occurrence: None)
  Receive Date: 20110525
  Receipt Date: 20110516
  Transmission Date: 20111010
  Serious: Yes (Life-Threatening, Other)
  Sender: FDA-Public Use
  Company Number: DE-JNJFOC-20110205883

PATIENT
  Sex: Male
  Weight: 70 kg

DRUGS (6)
  1. TAPENTADOL [Suspect]
     Indication: PAIN
     Route: 065
     Dates: start: 20101203
  2. TILIDINE [Concomitant]
     Dates: start: 20110129
  3. BUPRENORPHINE [Concomitant]
     Route: 065
  4. TAPENTADOL [Suspect]
     Route: 065
  5. BEROTEC [Concomitant]
     Route: 065
  6. TAPENTADOL [Suspect]
     Route: 065
     Dates: end: 20110129

REACTIONS (2)
  - WITHDRAWAL SYNDROME [None]
  - DEPRESSION SUICIDAL [None]
